FAERS Safety Report 10386044 (Version 1)
Quarter: 2014Q1

REPORT INFORMATION
  Report Type: Spontaneous
  Country: US (occurrence: None)
  Receive Date: 20140306
  Receipt Date: 20140306
  Transmission Date: 20141002
  Serious: Yes (Other)
  Sender: FDA-Public Use
  Company Number: 163-21880-13070489

PATIENT
  Age: 73 Year
  Sex: Male

DRUGS (10)
  1. REVLIMID ( LENALIDOMIDE) ( 5 MILLIGRAM, CAPSULES) [Suspect]
     Indication: PLASMA CELL MYELOMA
     Route: 048
     Dates: start: 201305
  2. DEXAMETHASONE [Suspect]
     Indication: PRODUCT USED FOR UNKNOWN INDICATION
     Dosage: NOT PROVIDED, UNK
  3. BABY ASPIRIN (ACETYLSALICYCLIC ACID) (CHEWABLE TABLET) [Concomitant]
  4. CENTRUM MULTIVITAMIN (CHEWABLE TABLET) [Concomitant]
  5. AMLODIPINE BESYLATE (AMLODIPINE BESILATE) (TABLETS) [Concomitant]
  6. TEKTURNA (ALISKIREN) (TABLETS) [Concomitant]
  7. PRAVASTATIN SODIUM (TABLETS) [Concomitant]
  8. VITAMIN B COMPLEX (B-KOMPLEX ^LECIVA^) (CAPSULES) [Concomitant]
  9. FLAX SEED OIL (LINUM USITATISSIUM SEED OIL) [Concomitant]
  10. VITAMIN B (CYANOCOBALAMIN) (TABLETS) [Concomitant]

REACTIONS (1)
  - Agitation [None]
